FAERS Safety Report 5748133-1 (Version None)
Quarter: 2008Q2

REPORT INFORMATION
  Report Type: 
  Country: None (occurrence: None)
  Receive Date: 20080523
  Receipt Date: 20080516
  Transmission Date: 20081010
  Serious: Yes (Hospitalization)
  Sender: FDA-Public Use
  Company Number: FR-BOEHRINGER INGELHEIM GMBH, GERMANY-2008-FF-00373FF

PATIENT
  Sex: Female

DRUGS (10)
  1. ATROVENT [Suspect]
     Indication: ASTHMA
     Dates: end: 20070310
  2. SINTROM [Concomitant]
     Indication: ARRHYTHMIA
     Dates: end: 20070311
  3. ATACAND [Concomitant]
     Indication: HYPERTENSION
     Route: 048
     Dates: start: 20070216, end: 20070312
  4. FORLAX [Concomitant]
     Indication: CONSTIPATION
     Route: 048
     Dates: end: 20070319
  5. LANSOYL [Concomitant]
     Indication: CONSTIPATION
     Route: 048
     Dates: end: 20070319
  6. LASILIX [Concomitant]
     Indication: HYPERTENSION
     Route: 048
     Dates: end: 20070312
  7. HEMIGOXINE [Concomitant]
  8. ALLOPURINOL [Concomitant]
  9. MOPRAL [Concomitant]
  10. PANTOPRAZOLE SODIUM [Concomitant]
     Route: 048

REACTIONS (1)
  - HAEMOTHORAX [None]
